FAERS Safety Report 9729772 (Version 1)
Quarter: 2013Q4

REPORT INFORMATION
  Report Type: Spontaneous
  Country: US (occurrence: US)
  Receive Date: 20131204
  Receipt Date: 20131204
  Transmission Date: 20140711
  Serious: No
  Sender: FDA-Public Use
  Company Number: US-GILEAD-2009-0022399

PATIENT
  Sex: Female
  Weight: 75.75 kg

DRUGS (12)
  1. LETAIRIS [Suspect]
     Indication: PULMONARY ARTERIAL HYPERTENSION
     Route: 048
     Dates: start: 20090513
  2. WARFARIN [Concomitant]
  3. DILTIAZEM [Concomitant]
  4. SIMVASTATIN [Concomitant]
  5. DIGOXIN [Concomitant]
  6. FUROSEMIDE [Concomitant]
  7. ASPIRIN [Concomitant]
  8. REVATIO [Concomitant]
  9. ALBUTEROL [Concomitant]
  10. PREDNISONE [Concomitant]
  11. TYLENOL W/ CODEINE #3 [Concomitant]
  12. KLOR-CON [Concomitant]

REACTIONS (3)
  - Palpitations [Unknown]
  - Gastric disorder [Unknown]
  - Nausea [Unknown]
